FAERS Safety Report 20226089 (Version 11)
Quarter: 2022Q2

REPORT INFORMATION
  Report Type: Report from Study
  Country: US (occurrence: US)
  Receive Date: 20211224
  Receipt Date: 20220614
  Transmission Date: 20220721
  Serious: No
  Sender: FDA-Public Use
  Company Number: US-NOVARTISTESTPH-NVSC2021US292484

PATIENT
  Age: 81 Year
  Sex: Female

DRUGS (11)
  1. ENTRESTO [Suspect]
     Active Substance: SACUBITRIL\VALSARTAN
     Indication: Product used for unknown indication
     Dosage: 1 DOSAGE FORM, BID (24/26 MG)
     Route: 065
     Dates: start: 20211212
  2. ENTRESTO [Suspect]
     Active Substance: SACUBITRIL\VALSARTAN
     Dosage: 1 DOSAGE FORM, QD (24/26 MG)
     Route: 065
     Dates: start: 20220211
  3. ENTRESTO [Suspect]
     Active Substance: SACUBITRIL\VALSARTAN
     Dosage: 1 DOSAGE FORM (24/26 MG)
     Route: 048
     Dates: start: 20211212
  4. PREDNISONE [Concomitant]
     Active Substance: PREDNISONE
     Indication: Bronchitis chronic
     Dosage: 5 MG
     Route: 065
     Dates: start: 2012
  5. PREDNISONE [Concomitant]
     Active Substance: PREDNISONE
     Dosage: 10 MG
     Route: 065
  6. PREDNISONE [Concomitant]
     Active Substance: PREDNISONE
     Dosage: 20 MG
     Route: 065
     Dates: start: 2012
  7. POTASSIUM [Concomitant]
     Active Substance: POTASSIUM
     Indication: Product used for unknown indication
     Dosage: UNK
     Route: 065
  8. MAGNESIUM [Concomitant]
     Active Substance: MAGNESIUM
     Indication: Product used for unknown indication
     Dosage: UNK
     Route: 065
  9. ALBUTEROL [Concomitant]
     Active Substance: ALBUTEROL
     Indication: Product used for unknown indication
     Route: 065
     Dates: start: 2012, end: 2015
  10. TYLENOL [Concomitant]
     Active Substance: ACETAMINOPHEN
     Indication: Product used for unknown indication
     Dosage: UNK
     Route: 065
  11. LEVALBUTEROL [Concomitant]
     Active Substance: LEVALBUTEROL
     Indication: Product used for unknown indication
     Dosage: UNK
     Route: 065

REACTIONS (15)
  - Tongue erythema [Not Recovered/Not Resolved]
  - Glossodynia [Not Recovered/Not Resolved]
  - Memory impairment [Not Recovered/Not Resolved]
  - Cardiac disorder [Unknown]
  - Concomitant disease aggravated [Recovering/Resolving]
  - Movement disorder [Recovering/Resolving]
  - Arthralgia [Not Recovered/Not Resolved]
  - Asthenia [Recovering/Resolving]
  - Inappropriate schedule of product administration [Unknown]
  - Dry mouth [Not Recovered/Not Resolved]
  - Upper respiratory tract infection [Unknown]
  - Hypotension [Recovering/Resolving]
  - Dyspnoea [Not Recovered/Not Resolved]
  - Peripheral swelling [Recovering/Resolving]
  - Throat clearing [Unknown]

NARRATIVE: CASE EVENT DATE: 20211201
